FAERS Safety Report 18853576 (Version 2)
Quarter: 2021Q1

REPORT INFORMATION
  Report Type: Report from Study
  Country: US (occurrence: US)
  Receive Date: 20210205
  Receipt Date: 20210309
  Transmission Date: 20210420
  Serious: Yes (Other)
  Sender: FDA-Public Use
  Company Number: US-BRISTOL-MYERS SQUIBB COMPANY-BMS-2021-009802

PATIENT
  Age: 55 Year
  Sex: Female
  Weight: 56.11 kg

DRUGS (2)
  1. NIVOLUMAB [Suspect]
     Active Substance: NIVOLUMAB
     Indication: RENAL CELL CARCINOMA
     Dosage: 164 MILLIGRAM
     Route: 065
     Dates: start: 20200728, end: 20201013
  2. NIVOLUMAB [Suspect]
     Active Substance: NIVOLUMAB
     Dosage: 480 MILLIGRAM
     Route: 065
     Dates: end: 20201208

REACTIONS (2)
  - COVID-19 [Recovered/Resolved]
  - Neuralgia [Recovering/Resolving]

NARRATIVE: CASE EVENT DATE: 20210105
